FAERS Safety Report 18993343 (Version 1)
Quarter: 2021Q1

REPORT INFORMATION
  Report Type: Spontaneous
  Country: GB (occurrence: GB)
  Receive Date: 20210310
  Receipt Date: 20210310
  Transmission Date: 20210420
  Serious: Yes (Hospitalization)
  Sender: FDA-Public Use
  Company Number: GB-VERTEX PHARMACEUTICALS-2021-003798

PATIENT
  Age: 33 Year
  Sex: Female
  Weight: 50 kg

DRUGS (26)
  1. KAFTRIO [Suspect]
     Active Substance: ELEXACAFTOR\IVACAFTOR\TEZACAFTOR
     Dosage: 1 TAB IN AM
     Route: 048
     Dates: start: 20201215
  2. SERETIDE [Concomitant]
     Active Substance: FLUTICASONE PROPIONATE\SALMETEROL XINAFOATE
  3. LIDOCAINE. [Concomitant]
     Active Substance: LIDOCAINE
  4. VITAMIN E [Concomitant]
     Active Substance: .ALPHA.-TOCOPHEROL
  5. COLOMYCIN [Concomitant]
  6. TIOTROPIUM [Concomitant]
     Active Substance: TIOTROPIUM
  7. KALYDECO [Suspect]
     Active Substance: IVACAFTOR
     Indication: CYSTIC FIBROSIS
     Dosage: 1 TAB (150MG IVACAFTOR) AT NIGHT
     Route: 048
     Dates: start: 20201005, end: 202012
  8. ADCAL?D3 [Concomitant]
     Active Substance: CALCIUM CARBONATE\CHOLECALCIFEROL
  9. CHIESI BRAMITOB [Concomitant]
  10. PREDNISOLONE. [Concomitant]
     Active Substance: PREDNISOLONE
  11. FIASP [Concomitant]
     Active Substance: INSULIN ASPART
  12. OMEPRAZOLE. [Concomitant]
     Active Substance: OMEPRAZOLE
  13. KAFTRIO [Suspect]
     Active Substance: ELEXACAFTOR\IVACAFTOR\TEZACAFTOR
     Indication: CYSTIC FIBROSIS
     Dosage: 2 TABS IN AM
     Route: 048
     Dates: start: 20201005, end: 202012
  14. KALYDECO [Suspect]
     Active Substance: IVACAFTOR
     Dosage: UNK
     Route: 048
     Dates: start: 20201215
  15. SODIUM CHLORIDE. [Concomitant]
     Active Substance: SODIUM CHLORIDE
  16. NAPROXEN. [Concomitant]
     Active Substance: NAPROXEN
  17. HUMULIN S [Concomitant]
  18. CREON [Concomitant]
     Active Substance: PANCRELIPASE AMYLASE\PANCRELIPASE LIPASE\PANCRELIPASE PROTEASE
  19. FULTIUM?D3 [Concomitant]
     Active Substance: CHOLECALCIFEROL
  20. DORNASE ALFA. [Concomitant]
     Active Substance: DORNASE ALFA
  21. LYMECYCLINE [Concomitant]
     Active Substance: LYMECYCLINE
  22. METOCLOPRAMIDE. [Concomitant]
     Active Substance: METOCLOPRAMIDE
  23. MORPHINE [Concomitant]
     Active Substance: MORPHINE
  24. AZITHROMYCIN ANHYDROUS. [Concomitant]
     Active Substance: AZITHROMYCIN ANHYDROUS
  25. FERROUS FUMARATE [Concomitant]
     Active Substance: FERROUS FUMARATE
  26. SALBUTAMOL [Concomitant]
     Active Substance: ALBUTEROL

REACTIONS (2)
  - Back pain [Recovered/Resolved]
  - Infection [Unknown]

NARRATIVE: CASE EVENT DATE: 2020
